FAERS Safety Report 10615423 (Version 1)
Quarter: 2014Q4

REPORT INFORMATION
  Report Type: Spontaneous
  Country: US (occurrence: US)
  Receive Date: 20141201
  Receipt Date: 20141201
  Transmission Date: 20150529
  Serious: No
  Sender: FDA-Public Use
  Company Number: US-PFIZER INC-2014325909

PATIENT
  Age: 93 Year
  Sex: Female
  Weight: 61 kg

DRUGS (8)
  1. XELJANZ [Suspect]
     Active Substance: TOFACITINIB CITRATE
     Indication: RHEUMATOID ARTHRITIS
     Dosage: 5 MG, 2X/DAY, AT MORNING AND AT DINNER
     Route: 048
     Dates: start: 20141113
  2. PREDNISONE. [Concomitant]
     Active Substance: PREDNISONE
     Indication: ARTHRITIS
     Dosage: 5 MG, UNK
  3. ACTEMRA [Suspect]
     Active Substance: TOCILIZUMAB
  4. FOLIC ACID. [Concomitant]
     Active Substance: FOLIC ACID
     Dosage: 3 DF, UNK
  5. CALCIUM [Concomitant]
     Active Substance: CALCIUM
     Dosage: UNK, DAILY
  6. REMICADE [Suspect]
     Active Substance: INFLIXIMAB
  7. DILTIAZEM [Concomitant]
     Active Substance: DILTIAZEM
  8. KEFLEX [Concomitant]
     Active Substance: CEPHALEXIN
     Indication: CYSTITIS
     Dosage: 250 MG, UNK

REACTIONS (1)
  - Arthralgia [Not Recovered/Not Resolved]

NARRATIVE: CASE EVENT DATE: 20141119
